FAERS Safety Report 4943933-X (Version None)
Quarter: 2006Q1

REPORT INFORMATION
  Report Type: 
  Country: None (occurrence: None)
  Receive Date: 20060313
  Receipt Date: 20060313
  Transmission Date: 20060701
  Serious: Yes (Life-Threatening)
  Sender: FDA-Public Use
  Company Number: None

PATIENT
  Sex: Female
  Weight: 61.2356 kg

DRUGS (2)
  1. CYMBALTA [Suspect]
     Indication: DEPRESSION
     Dates: start: 20050101, end: 20060215
  2. CYMBALTA [Suspect]
     Indication: PAIN
     Dates: start: 20050101, end: 20060215

REACTIONS (8)
  - ABNORMAL BEHAVIOUR [None]
  - AGITATION [None]
  - CRYING [None]
  - DRUG EFFECT DECREASED [None]
  - IRRITABILITY [None]
  - MEDICATION TAMPERING [None]
  - SUICIDAL IDEATION [None]
  - THINKING ABNORMAL [None]
